FAERS Safety Report 4615412-0 (Version None)
Quarter: 2005Q1

REPORT INFORMATION
  Report Type: 
  Country: None (occurrence: None)
  Receive Date: 20050317
  Receipt Date: 20050307
  Transmission Date: 20050727
  Serious: Yes (Hospitalization)
  Sender: FDA-Public Use
  Company Number: MEDI-0002997

PATIENT
  Age: 78 Year
  Sex: Female

DRUGS (4)
  1. ETHYOL [Suspect]
     Indication: RADIOTHERAPY
     Dosage: 500 MG, 5 IN 1 WK, INTRAVENOUS
     Route: 042
     Dates: start: 20050125, end: 20050303
  2. RADIATION THERAPY [Concomitant]
  3. TAXOTERE [Concomitant]
  4. DIAGNOSTIC RADIOPHARMACEUTICALS [Concomitant]

REACTIONS (3)
  - BLOOD PRESSURE INCREASED [None]
  - CHEST PAIN [None]
  - PNEUMONIA [None]
